FAERS Safety Report 5601441-7 (Version None)
Quarter: 2008Q1

REPORT INFORMATION
  Report Type: 
  Country: None (occurrence: None)
  Receive Date: 20080124
  Receipt Date: 20080111
  Transmission Date: 20080703
  Serious: Yes (Other)
  Sender: FDA-Public Use
  Company Number: PHMT2008CA00470

PATIENT
  Sex: Male

DRUGS (1)
  1. DIOVAN T30230+TAB+HY [Suspect]
     Indication: HYPERTENSION
     Route: 048

REACTIONS (4)
  - EYE DISORDER [None]
  - EYE LASER SURGERY [None]
  - HYPERTENSION [None]
  - PHOTOPSIA [None]
